FAERS Safety Report 19425811 (Version 6)
Quarter: 2024Q4

REPORT INFORMATION
  Report Type: Spontaneous
  Country: ZA (occurrence: ZA)
  Receive Date: 20210617
  Receipt Date: 20241001
  Transmission Date: 20250115
  Serious: Yes (Hospitalization, Other)
  Sender: CELLTRION
  Company Number: ZA-CELLTRION INC.-2021ZA007901

PATIENT

DRUGS (9)
  1. INFLIXIMAB [Suspect]
     Active Substance: INFLIXIMAB
     Indication: Colitis ulcerative
     Dosage: 180 MG
     Route: 042
     Dates: start: 20201209
  2. INFLIXIMAB [Suspect]
     Active Substance: INFLIXIMAB
     Indication: Crohn^s disease
     Dosage: 155 MG AT 0 WEEKS; 2 WEEKS AND 6 WEEKS
     Route: 042
     Dates: start: 20201209
  3. INFLIXIMAB [Suspect]
     Active Substance: INFLIXIMAB
     Dosage: 6 WEEKLY INTERVALS/ EVERY 6 WEEKS
     Route: 042
  4. INFLIXIMAB [Suspect]
     Active Substance: INFLIXIMAB
     Dosage: 6 WEEKLY INTERVAL
     Route: 042
  5. METHOTREXATE [Concomitant]
     Active Substance: METHOTREXATE
     Indication: Colitis ulcerative
     Dosage: 12.5 MG, WEEKLY
     Route: 048
  6. METHOTREXATE [Concomitant]
     Active Substance: METHOTREXATE
     Indication: Crohn^s disease
  7. FOLIC ACID [Concomitant]
     Active Substance: FOLIC ACID
     Indication: Colitis ulcerative
     Dosage: 5 MG P.O
     Route: 048
  8. PENTASA [Concomitant]
     Active Substance: MESALAMINE
     Indication: Colitis ulcerative
     Dosage: 1 G, SUPP NOCTE
  9. PENTASA [Concomitant]
     Active Substance: MESALAMINE
     Dosage: 2 G BD P.O
     Route: 048

REACTIONS (12)
  - Condition aggravated [Unknown]
  - Colitis ulcerative [Unknown]
  - Anal abscess [Recovering/Resolving]
  - Fistula [Not Recovered/Not Resolved]
  - Anal fissure [Not Recovered/Not Resolved]
  - Flatulence [Not Recovered/Not Resolved]
  - Abdominal distension [Not Recovered/Not Resolved]
  - Diarrhoea [Not Recovered/Not Resolved]
  - Overdose [Unknown]
  - Underdose [Unknown]
  - Intentional product use issue [Unknown]
  - Intentional product use issue [Unknown]

NARRATIVE: CASE EVENT DATE: 20210519
